FAERS Safety Report 11776744 (Version 1)
Quarter: 2015Q4

REPORT INFORMATION
  Report Type: Report from Study
  Country: US (occurrence: US)
  Receive Date: 20151125
  Receipt Date: 20151125
  Transmission Date: 20160304
  Serious: Yes (Death, Hospitalization)
  Sender: FDA-Public Use
  Company Number: US-ROCHE-1666989

PATIENT
  Age: 43 Year
  Sex: Female

DRUGS (2)
  1. BEVACIZUMAB [Suspect]
     Active Substance: BEVACIZUMAB
     Indication: BREAST CANCER METASTATIC
     Dosage: OVER 30 TO 90 MIN ON DAYS 1 AND 15, LAST DOSE PRIOR TO SAE, 07/OCT/2010
     Route: 042
     Dates: start: 20100521
  2. NAB-PACLITAXEL [Suspect]
     Active Substance: PACLITAXEL
     Indication: BREAST CANCER METASTATIC
     Dosage: OVER 30 MINUTES ON DAY 1, 8 AND 15, LAST DOSE PRIOR TO SAE, 07/OCT/2010
     Route: 042
     Dates: start: 20100521

REACTIONS (1)
  - Sepsis [Fatal]

NARRATIVE: CASE EVENT DATE: 20101101
